FAERS Safety Report 16125333 (Version 1)
Quarter: 2019Q1

REPORT INFORMATION
  Report Type: Spontaneous
  Country: DE (occurrence: DE)
  Receive Date: 20190328
  Receipt Date: 20190328
  Transmission Date: 20190418
  Serious: Yes (Other)
  Sender: FDA-Public Use
  Company Number: PHHY2019DE066913

PATIENT
  Age: 53 Year
  Sex: Female

DRUGS (1)
  1. IRBESARTAN ? 1 A PHARMA [Suspect]
     Active Substance: IRBESARTAN
     Indication: PRODUCT USED FOR UNKNOWN INDICATION
     Dosage: UNK
     Route: 065

REACTIONS (5)
  - Palpitations [Unknown]
  - Hypertension [Unknown]
  - Swelling face [Unknown]
  - Dyspnoea [Unknown]
  - Headache [Unknown]
